FAERS Safety Report 17647085 (Version 1)
Quarter: 2020Q2

REPORT INFORMATION
  Report Type: Spontaneous
  Country: GB (occurrence: GB)
  Receive Date: 20200408
  Receipt Date: 20200408
  Transmission Date: 20200713
  Serious: Yes (Hospitalization, Other)
  Sender: FDA-Public Use
  Company Number: GB-PFIZER INC-2020140756

PATIENT
  Age: 8 Month
  Sex: Female
  Weight: 8.13 kg

DRUGS (14)
  1. CEFTRIAXONE. [Concomitant]
     Active Substance: CEFTRIAXONE
     Indication: CEREBROSPINAL FLUID LEAKAGE
     Dosage: UNK
     Route: 042
     Dates: start: 20191229
  2. MORPHINE [Concomitant]
     Active Substance: MORPHINE
     Dosage: UNK
  3. LINEZOLID. [Suspect]
     Active Substance: LINEZOLID
     Indication: WOUND INFECTION BACTERIAL
     Dosage: 240 MG, 1X/DAY
     Route: 048
     Dates: start: 20200109, end: 20200113
  4. DIORALYTE [CITRIC ACID;GLUCOSE;POTASSIUM CHLORIDE;SODIUM BICARBONATE;S [Concomitant]
     Dosage: UNK
  5. CHLORPHENAMINE [Concomitant]
     Active Substance: CHLORPHENIRAMINE MALEATE
     Dosage: UNK
  6. CARBAMAZEPINE. [Concomitant]
     Active Substance: CARBAMAZEPINE
     Dosage: UNK
  7. METANIUM [TITANIUM DIOXIDE;TITANIUM PEROXIDE;TITANIUM SALICYLATE;TITAN [Concomitant]
     Dosage: UNK
  8. ONDANSETRON [Concomitant]
     Active Substance: ONDANSETRON
     Dosage: UNK
  9. METRONIDAZOLE. [Concomitant]
     Active Substance: METRONIDAZOLE
     Dosage: UNK
     Route: 042
     Dates: start: 20191229, end: 20200109
  10. MIDAZOLAM. [Concomitant]
     Active Substance: MIDAZOLAM
     Dosage: UNK
  11. VANCOMYCIN [Concomitant]
     Active Substance: VANCOMYCIN
     Indication: CEREBROSPINAL FLUID LEAKAGE
     Dosage: UNK
     Route: 042
     Dates: start: 20191229, end: 20200109
  12. HYDROCORTISONE. [Concomitant]
     Active Substance: HYDROCORTISONE
     Dosage: UNK
  13. METRONIDAZOLE. [Concomitant]
     Active Substance: METRONIDAZOLE
     Indication: WOUND INFECTION
     Dosage: UNK
     Route: 048
     Dates: start: 20200109
  14. GAVISCON [ALGINIC ACID;ALUMINIUM HYDROXIDE GEL, DRIED;MAGNESIUM TRISIL [Concomitant]
     Active Substance: ALGINIC ACID\ALUMINUM HYDROXIDE\MAGNESIUM TRISILICATE
     Dosage: UNK

REACTIONS (4)
  - Seizure [Recovered/Resolved]
  - Change in seizure presentation [Recovered/Resolved]
  - Off label use [Unknown]
  - Product use issue [Unknown]

NARRATIVE: CASE EVENT DATE: 20200110
